FAERS Safety Report 6519991-8 (Version None)
Quarter: 2009Q4

REPORT INFORMATION
  Report Type: 
  Country: None (occurrence: None)
  Receive Date: 20091229
  Receipt Date: 20091217
  Transmission Date: 20100525
  Serious: Yes (Hospitalization, Other)
  Sender: FDA-Public Use
  Company Number: JP-JNJFOC-20091205623

PATIENT
  Sex: Male

DRUGS (6)
  1. PLACEBO [Suspect]
     Indication: PROCEDURAL PAIN
     Route: 062
  2. PLACEBO [Suspect]
     Indication: COMPLEX REGIONAL PAIN SYNDROME
     Route: 062
  3. PLACEBO [Suspect]
     Indication: POST HERPETIC NEURALGIA
     Route: 062
  4. FENTANYL-100 [Suspect]
     Indication: PROCEDURAL PAIN
     Route: 062
  5. FENTANYL-100 [Suspect]
     Indication: COMPLEX REGIONAL PAIN SYNDROME
     Route: 062
  6. FENTANYL-100 [Suspect]
     Indication: POST HERPETIC NEURALGIA
     Route: 062

REACTIONS (1)
  - HAEMORRHOIDS [None]
